FAERS Safety Report 6671485-5 (Version None)
Quarter: 2010Q2

REPORT INFORMATION
  Report Type: 
  Country: None (occurrence: None)
  Receive Date: 20100407
  Receipt Date: 20100324
  Transmission Date: 20101027
  Serious: Yes (Hospitalization, Other)
  Sender: FDA-Public Use
  Company Number: US-MERCK-1003USA03945

PATIENT
  Age: 63 Year
  Sex: Female
  Weight: 58 kg

DRUGS (12)
  1. PRINIVIL [Suspect]
     Indication: CARDIAC DISORDER
     Route: 048
     Dates: start: 20091207, end: 20091208
  2. PLAVIX [Suspect]
     Route: 048
     Dates: start: 20091207
  3. PLAVIX [Suspect]
     Route: 048
     Dates: start: 20100209, end: 20100210
  4. ZOCOR [Suspect]
     Route: 048
     Dates: start: 20091207, end: 20091201
  5. ASPIRIN [Suspect]
     Route: 048
     Dates: start: 20091207
  6. XANAX [Concomitant]
     Route: 065
  7. VICODIN [Concomitant]
     Route: 065
  8. BENADRYL [Concomitant]
     Route: 065
  9. SOLU-MEDROL [Concomitant]
     Route: 065
  10. PEPCID [Concomitant]
     Route: 048
  11. EFFIENT [Concomitant]
     Route: 065
  12. TICLID [Concomitant]
     Route: 065

REACTIONS (9)
  - ADVERSE EVENT [None]
  - ANAPHYLACTIC REACTION [None]
  - BLOOD PRESSURE INCREASED [None]
  - HEADACHE [None]
  - HYPOAESTHESIA EYE [None]
  - HYPOAESTHESIA FACIAL [None]
  - HYPOAESTHESIA ORAL [None]
  - HYPOTENSION [None]
  - PANIC REACTION [None]
